FAERS Safety Report 25665133 (Version 1)
Quarter: 2025Q3

REPORT INFORMATION
  Report Type: Spontaneous
  Country: CA (occurrence: CA)
  Receive Date: 20250811
  Receipt Date: 20250811
  Transmission Date: 20251021
  Serious: Yes (Death, Life-Threatening, Hospitalization, Disabling, Congenital Anomaly, Other)
  Sender: Haleon PLC
  Company Number: CA-002147023-NVSC2025CA125037

PATIENT
  Age: 43 Year
  Sex: Female
  Weight: 96 kg

DRUGS (15)
  1. VOLTAREN [Suspect]
     Active Substance: DICLOFENAC SODIUM
     Indication: Product used for unknown indication
  2. DICLOFENAC [Suspect]
     Active Substance: DICLOFENAC
     Indication: Product used for unknown indication
  3. DICLOFENAC SODIUM [Suspect]
     Active Substance: DICLOFENAC SODIUM
     Indication: Product used for unknown indication
  4. DICLOFENAC SODIUM [Suspect]
     Active Substance: DICLOFENAC SODIUM
     Indication: Rheumatoid arthritis
  5. DICLOFENAC SODIUM [Suspect]
     Active Substance: DICLOFENAC SODIUM
  6. ERELZI [Suspect]
     Active Substance: ETANERCEPT-SZZS
     Indication: Rheumatoid arthritis
     Dosage: 50 MG, QW
     Route: 058
  7. ERELZI [Suspect]
     Active Substance: ETANERCEPT-SZZS
     Route: 058
  8. ERELZI [Suspect]
     Active Substance: ETANERCEPT-SZZS
     Dosage: 50 MG, QW?PATIENT ROA: UNKNOWN
  9. ERELZI [Suspect]
     Active Substance: ETANERCEPT-SZZS
     Route: 058
  10. DICLOFENAC POTASSIUM [Suspect]
     Active Substance: DICLOFENAC POTASSIUM
     Indication: Product used for unknown indication
  11. DICLOFENAC POTASSIUM [Suspect]
     Active Substance: DICLOFENAC POTASSIUM
  12. ALENDRONIC ACID [Suspect]
     Active Substance: ALENDRONIC ACID
     Indication: Rheumatoid arthritis
     Route: 050
  13. PANTOPRAZOLE [Suspect]
     Active Substance: PANTOPRAZOLE
     Indication: Product used for unknown indication
     Route: 016
  14. PANTOPRAZOLE [Suspect]
     Active Substance: PANTOPRAZOLE
     Indication: Rheumatoid arthritis
  15. COSENTYX [Suspect]
     Active Substance: SECUKINUMAB
     Indication: Psoriatic arthropathy

REACTIONS (21)
  - Type 2 diabetes mellitus [Fatal]
  - Pruritus [Fatal]
  - Psoriasis [Fatal]
  - Peripheral venous disease [Fatal]
  - Swollen joint count increased [Fatal]
  - Sinusitis [Fatal]
  - Taste disorder [Fatal]
  - Pneumonia [Fatal]
  - Product use in unapproved indication [Fatal]
  - Stomatitis [Fatal]
  - Swelling [Fatal]
  - Pulmonary fibrosis [Fatal]
  - Sleep disorder due to a general medical condition [Fatal]
  - Pyrexia [Fatal]
  - Sleep disorder [Fatal]
  - Peripheral swelling [Fatal]
  - Rheumatic fever [Fatal]
  - Psoriatic arthropathy [Fatal]
  - Subcutaneous drug absorption impaired [Fatal]
  - Product quality issue [Fatal]
  - Pustular psoriasis [Fatal]
